FAERS Safety Report 24749972 (Version 1)
Quarter: 2024Q4

REPORT INFORMATION
  Report Type: Spontaneous
  Country: US (occurrence: US)
  Receive Date: 20241218
  Receipt Date: 20241218
  Transmission Date: 20250115
  Serious: No
  Sender: SANOFI AVENTIS
  Company Number: US-SA-2024SA372392

PATIENT
  Sex: Female
  Weight: 61.36 kg

DRUGS (2)
  1. DUPIXENT [Suspect]
     Active Substance: DUPILUMAB
     Indication: Dermatitis atopic
     Dosage: 300 MG, QOW
  2. ADAPALENE [Concomitant]
     Active Substance: ADAPALENE
     Dosage: UNK

REACTIONS (1)
  - Dermatitis atopic [Unknown]
